FAERS Safety Report 4735530-6 (Version None)
Quarter: 2005Q3

REPORT INFORMATION
  Report Type: 
  Country: None (occurrence: None)
  Receive Date: 20050803
  Receipt Date: 20050711
  Transmission Date: 20060218
  Serious: Yes (Other)
  Sender: FDA-Public Use
  Company Number: USA0507102699

PATIENT

DRUGS (4)
  1. HUMULIN R [Suspect]
     Dates: start: 20050101, end: 20050101
  2. HUMULIN N [Suspect]
     Dates: start: 20050101
  3. HUMALOG [Suspect]
     Dates: start: 20050101
  4. LEVOTHYROXINE [Concomitant]

REACTIONS (5)
  - DRUG EXPOSURE DURING PREGNANCY [None]
  - DRUG EXPOSURE VIA BREAST MILK [None]
  - ECHOCARDIOGRAM ABNORMAL [None]
  - FOETAL DISORDER [None]
  - PHARMACEUTICAL PRODUCT COMPLAINT [None]
